FAERS Safety Report 21169113 (Version 1)
Quarter: 2022Q3

REPORT INFORMATION
  Report Type: Spontaneous
  Country: JP (occurrence: JP)
  Receive Date: 20220803
  Receipt Date: 20220803
  Transmission Date: 20221027
  Serious: Yes (Other)
  Sender: FDA-Public Use
  Company Number: JP-BEH-2022147983

PATIENT
  Age: 54 Year
  Sex: Male
  Weight: 66.5 kg

DRUGS (10)
  1. PRIVIGEN [Suspect]
     Active Substance: HUMAN IMMUNOGLOBULIN G
     Indication: Hypogammaglobulinaemia
     Dosage: 10 GRAM, QD
     Route: 041
     Dates: start: 20220404, end: 20220404
  2. PRIVIGEN [Suspect]
     Active Substance: HUMAN IMMUNOGLOBULIN G
     Dosage: 10 GRAM, QD
     Route: 041
     Dates: start: 20220513, end: 20220513
  3. PRIVIGEN [Suspect]
     Active Substance: HUMAN IMMUNOGLOBULIN G
     Dosage: 10 GRAM, QD
     Route: 041
     Dates: start: 20220707, end: 20220707
  4. FEBUXOSTAT [Concomitant]
     Active Substance: FEBUXOSTAT
  5. URSODIOL [Concomitant]
     Active Substance: URSODIOL
  6. LANSOPRAZOLE [Concomitant]
     Active Substance: LANSOPRAZOLE
  7. VALACYCLOVIR HYDROCHLORIDE [Concomitant]
     Active Substance: VALACYCLOVIR HYDROCHLORIDE
  8. POLAPREZINC [Concomitant]
     Active Substance: POLAPREZINC
  9. PROGRAF [Concomitant]
     Active Substance: TACROLIMUS
  10. POTASSIUM CHLORIDE [Concomitant]
     Active Substance: POTASSIUM CHLORIDE

REACTIONS (5)
  - Anaphylactic reaction [Recovered/Resolved]
  - Blood pressure increased [Recovered/Resolved]
  - Oxygen saturation decreased [Recovered/Resolved]
  - Dyspnoea [Recovered/Resolved]
  - Hyperhidrosis [Recovered/Resolved]

NARRATIVE: CASE EVENT DATE: 20220707
